FAERS Safety Report 14337109 (Version 1)
Quarter: 2017Q4

REPORT INFORMATION
  Report Type: Spontaneous
  Country: US (occurrence: US)
  Receive Date: 20171228
  Receipt Date: 20171228
  Transmission Date: 20180321
  Serious: Yes (Hospitalization)
  Sender: FDA-Public Use
  Company Number: None

PATIENT
  Age: 48 Year
  Sex: Female
  Weight: 89.1 kg

DRUGS (1)
  1. COSENTYX [Suspect]
     Active Substance: SECUKINUMAB
     Indication: PSORIATIC ARTHROPATHY
     Dosage: ?          OTHER FREQUENCY:WEEKLY (LOADING);?
     Route: 058
     Dates: start: 20171120, end: 20171204

REACTIONS (3)
  - Anxiety [None]
  - Abdominal discomfort [None]
  - Chest discomfort [None]

NARRATIVE: CASE EVENT DATE: 20171126
